FAERS Safety Report 7247098-3 (Version None)
Quarter: 2011Q1

REPORT INFORMATION
  Report Type: 
  Country: None (occurrence: None)
  Receive Date: 20110127
  Receipt Date: 20100415
  Transmission Date: 20110831
  Serious: No
  Sender: FDA-Public Use
  Company Number: US-BAUSCH-2010BL002048

PATIENT
  Age: 77 Year
  Sex: Male

DRUGS (3)
  1. ALAWAY [Suspect]
     Indication: ASTHENOPIA
     Route: 047
     Dates: start: 20100401, end: 20100413
  2. SYNTHROID [Concomitant]
     Indication: HYPOTHYROIDISM
  3. ALAWAY [Suspect]
     Indication: OFF LABEL USE
     Route: 047
     Dates: start: 20100401, end: 20100413

REACTIONS (2)
  - EYE PAIN [None]
  - EYE IRRITATION [None]
